FAERS Safety Report 12342206 (Version 1)
Quarter: 2016Q2

REPORT INFORMATION
  Report Type: Spontaneous
  Country: US (occurrence: US)
  Receive Date: 20160506
  Receipt Date: 20160506
  Transmission Date: 20160815
  Serious: No
  Sender: FDA-Public Use
  Company Number: US-ANACOR-2016ANA00134

PATIENT
  Sex: Female
  Weight: 54.42 kg

DRUGS (2)
  1. KERYDIN [Suspect]
     Active Substance: TAVABOROLE
     Dosage: UNK, 1X/DAY
     Route: 061
     Dates: start: 20151130, end: 201603
  2. WHIPPED ARGAN OIL [Concomitant]

REACTIONS (3)
  - Hypersensitivity [Recovering/Resolving]
  - Musculoskeletal stiffness [Unknown]
  - Ingrowing nail [Recovering/Resolving]

NARRATIVE: CASE EVENT DATE: 2016
